FAERS Safety Report 7715154-9 (Version None)
Quarter: 2011Q3

REPORT INFORMATION
  Report Type: 
  Country: None (occurrence: None)
  Receive Date: 20110829
  Receipt Date: 20110823
  Transmission Date: 20111222
  Serious: Yes (Hospitalization)
  Sender: FDA-Public Use
  Company Number: CA-BRISTOL-MYERS SQUIBB COMPANY-15990427

PATIENT
  Age: 66 Year
  Sex: Male
  Weight: 92 kg

DRUGS (7)
  1. FLUOROURACIL [Suspect]
     Indication: HEAD AND NECK CANCER
     Dosage: LAST DOSE ON 12AUG2011
     Route: 042
     Dates: start: 20110809, end: 20110812
  2. ZOFRAN [Concomitant]
     Indication: ANTIEMETIC SUPPORTIVE CARE
     Dates: start: 20110810, end: 20110812
  3. DEXAMETHASONE [Concomitant]
     Indication: ANTIEMETIC SUPPORTIVE CARE
     Dates: start: 20110809, end: 20110811
  4. CISPLATIN [Suspect]
     Indication: HEAD AND NECK CANCER
     Dosage: LAST DOSE ON 08AUG2011
     Route: 042
     Dates: start: 20110808, end: 20110808
  5. CETUXIMAB [Suspect]
     Indication: HEAD AND NECK CANCER
     Dosage: VIAL,100MG/M2 D1,250MG/M2/WEEKLY,DRUG HELD ON 15AUG11 AND 22AUG11,RESTARTED ON 29AUG11
     Route: 042
     Dates: start: 20110808
  6. ASPIRIN [Concomitant]
     Indication: PROPHYLAXIS
     Dates: start: 20060101
  7. EMEND [Concomitant]
     Indication: ANTIEMETIC SUPPORTIVE CARE
     Dates: start: 20110808, end: 20110810

REACTIONS (2)
  - DEHYDRATION [None]
  - HYPONATRAEMIA [None]
